FAERS Safety Report 15079318 (Version 1)
Quarter: 2018Q2

REPORT INFORMATION
  Report Type: Report from Study
  Country: US (occurrence: US)
  Receive Date: 20180627
  Receipt Date: 20180627
  Transmission Date: 20180711
  Serious: No
  Sender: FDA-Public Use
  Company Number: US-AMGEN-USASL2017020345

PATIENT
  Age: 88 Year
  Sex: Female

DRUGS (2)
  1. ORENCIA [Concomitant]
     Active Substance: ABATACEPT
  2. PROLIA [Suspect]
     Active Substance: DENOSUMAB
     Indication: BONE DISORDER
     Dosage: UNK
     Route: 065
     Dates: start: 20161228

REACTIONS (1)
  - Off label use [Unknown]
